FAERS Safety Report 7830655-0 (Version None)
Quarter: 2011Q4

REPORT INFORMATION
  Report Type: 
  Country: None (occurrence: None)
  Receive Date: 20111021
  Receipt Date: 20111018
  Transmission Date: 20120403
  Serious: Yes (Hospitalization)
  Sender: FDA-Public Use
  Company Number: SK-PFIZER INC-2007018632

PATIENT
  Age: 23 Year
  Sex: Female
  Weight: 83 kg

DRUGS (5)
  1. LEVOTHYROXINE SODIUM [Concomitant]
     Route: 048
  2. CORTEF [Concomitant]
     Route: 048
  3. SOMATROPIN [Suspect]
     Indication: HYPOPITUITARISM
     Dosage: 0.7 MG, 1X/DAY
     Route: 058
     Dates: start: 20050812
  4. KLIMONORM [Concomitant]
     Route: 048
  5. PARLODEL [Concomitant]
     Route: 048

REACTIONS (2)
  - NEOPLASM RECURRENCE [None]
  - PITUITARY TUMOUR BENIGN [None]
